FAERS Safety Report 7462715-0 (Version None)
Quarter: 2011Q2

REPORT INFORMATION
  Report Type: 
  Country: None (occurrence: None)
  Receive Date: 20110506
  Receipt Date: 20110503
  Transmission Date: 20111010
  Serious: Yes (Life-Threatening, Hospitalization)
  Sender: FDA-Public Use
  Company Number: PHHY2011US37377

PATIENT
  Sex: Female

DRUGS (1)
  1. EXJADE [Suspect]
     Indication: SICKLE CELL ANAEMIA WITH CRISIS
     Dosage: 1500 MG, DAILY
     Route: 048
     Dates: start: 20110421

REACTIONS (3)
  - LOSS OF CONSCIOUSNESS [None]
  - HEADACHE [None]
  - RESPIRATORY RATE DECREASED [None]
